FAERS Safety Report 11751192 (Version 2)
Quarter: 2016Q1

REPORT INFORMATION
  Report Type: Spontaneous
  Country: US (occurrence: US)
  Receive Date: 20151118
  Receipt Date: 20160104
  Transmission Date: 20160525
  Serious: No
  Sender: FDA-Public Use
  Company Number: US-LEO PHARMA-238279

PATIENT
  Sex: Female

DRUGS (1)
  1. PICATO [Suspect]
     Active Substance: INGENOL MEBUTATE
     Indication: ACTINIC CHEILITIS
     Route: 061

REACTIONS (5)
  - Product use issue [Unknown]
  - Application site pain [Recovered/Resolved]
  - Application site erythema [Not Recovered/Not Resolved]
  - Incorrect drug administration duration [Unknown]
  - Application site vesicles [Recovered/Resolved]
